FAERS Safety Report 19276131 (Version 1)
Quarter: 2021Q2

REPORT INFORMATION
  Report Type: Spontaneous
  Country: ES (occurrence: ES)
  Receive Date: 20210519
  Receipt Date: 20210519
  Transmission Date: 20210717
  Serious: Yes (Hospitalization, Other)
  Sender: FDA-Public Use
  Company Number: ES-BRISTOL-MYERS SQUIBB COMPANY-BMS-2021-047186

PATIENT
  Age: 82 Year

DRUGS (1)
  1. OPDIVO [Suspect]
     Active Substance: NIVOLUMAB
     Indication: MALIGNANT MELANOMA
     Dosage: 480 MILLIGRAM, Q4WK
     Route: 051
     Dates: start: 20201201, end: 20210101

REACTIONS (8)
  - Hypocalcaemia [Recovered/Resolved]
  - Acute kidney injury [Recovering/Resolving]
  - Liver disorder [Recovering/Resolving]
  - Anaemia [Recovering/Resolving]
  - Concomitant disease aggravated [Recovering/Resolving]
  - Hypoalbuminaemia [Recovering/Resolving]
  - Hypomagnesaemia [Recovered/Resolved]
  - Metabolic acidosis [Recovered/Resolved]

NARRATIVE: CASE EVENT DATE: 20210409
